FAERS Safety Report 25948994 (Version 1)
Quarter: 2025Q4

REPORT INFORMATION
  Report Type: Spontaneous
  Country: US (occurrence: None)
  Receive Date: 20251021
  Receipt Date: 20251021
  Transmission Date: 20260118
  Serious: Yes (Hospitalization)
  Sender: FDA-CTU
  Company Number: None

PATIENT
  Sex: Female

DRUGS (1)
  1. VERZENIO [Suspect]
     Active Substance: ABEMACICLIB
     Indication: Anaemia
     Dosage: 100 MG TWICE A DAY ORAL
     Route: 048
     Dates: start: 20250227

REACTIONS (2)
  - Therapy interrupted [None]
  - Cardiac disorder [None]
